FAERS Safety Report 5952153-1 (Version None)
Quarter: 2008Q4

REPORT INFORMATION
  Report Type: 
  Country: None (occurrence: None)
  Receive Date: 20081113
  Receipt Date: 20080731
  Transmission Date: 20090506
  Serious: No
  Sender: FDA-Public Use
  Company Number: A0737970A

PATIENT
  Age: 54 Year
  Sex: Female

DRUGS (4)
  1. COREG [Suspect]
     Dosage: 1.5TAB TWICE PER DAY
     Route: 048
     Dates: start: 20020101
  2. TORSEMIDE [Suspect]
  3. COZAAR [Concomitant]
  4. ATIVAN [Concomitant]

REACTIONS (1)
  - ASTHENIA [None]
